FAERS Safety Report 5028686-1 (Version None)
Quarter: 2006Q2

REPORT INFORMATION
  Report Type: 
  Country: None (occurrence: None)
  Receive Date: 20060501
  Receipt Date: 20060214
  Transmission Date: 20061013
  Serious: No
  Sender: FDA-Public Use
  Company Number: 200610861BWH

PATIENT
  Age: 57 Year
  Sex: Male

DRUGS (6)
  1. NEXAVAR [Suspect]
     Indication: RENAL CELL CARCINOMA STAGE UNSPECIFIED
     Dosage: 400 MG, BID, ORAL
     Route: 048
     Dates: start: 20060101
  2. LIPITOR [Concomitant]
  3. LEXAPRO [Concomitant]
  4. CORVITE VITAMIN [Concomitant]
  5. MARINOL [Concomitant]
  6. IBUPROFEN [Concomitant]

REACTIONS (2)
  - ACNE [None]
  - DIARRHOEA [None]
